FAERS Safety Report 8418198-7 (Version None)
Quarter: 2012Q2

REPORT INFORMATION
  Report Type: 
  Country: None (occurrence: None)
  Receive Date: 20120323
  Receipt Date: 20110622
  Transmission Date: 20120825
  Serious: Yes (Other)
  Sender: FDA-Public Use
  Company Number: 163-21880-11022895

PATIENT
  Age: 75 Year
  Sex: Male

DRUGS (9)
  1. LOTREL [Concomitant]
  2. ZOMETA [Concomitant]
  3. SELENIUM (SELENIUM) [Concomitant]
  4. DEXAMETHASONE SODIUM PHOS (DEXAMETHASONE SODIUM PHOSPHATE) [Concomitant]
  5. ASPIRIN [Concomitant]
  6. VITAMIN B COMPLEX (B-KOMPLEX ^LECIVA^) [Concomitant]
  7. VELCADE [Concomitant]
  8. REVLIMID [Suspect]
     Indication: MULTIPLE MYELOMA
     Dosage: 25 MG, 1 IN 1 D, PO
     Route: 048
     Dates: start: 20110209
  9. TOPROL-XL [Concomitant]

REACTIONS (4)
  - MUSCLE SPASMS [None]
  - NAUSEA [None]
  - ABDOMINAL PAIN [None]
  - DECREASED APPETITE [None]
